FAERS Safety Report 4868850-5 (Version None)
Quarter: 2005Q4

REPORT INFORMATION
  Report Type: 
  Country: None (occurrence: None)
  Receive Date: 20051223
  Receipt Date: 20051215
  Transmission Date: 20060501
  Serious: Yes (Hospitalization)
  Sender: FDA-Public Use
  Company Number: 2005055741

PATIENT
  Age: 43 Year
  Sex: Female

DRUGS (7)
  1. ZYRTEC [Suspect]
     Indication: RHINITIS ALLERGIC
     Dosage: 10 MG (1 IN 1 D), ORAL
     Route: 048
     Dates: start: 20050226, end: 20050306
  2. CLARITHROMYCIN [Suspect]
     Indication: RHINITIS ALLERGIC
     Dosage: ORAL
     Route: 048
     Dates: start: 20050226, end: 20050302
  3. OLOPATADINE HYDROCHLORIDE [Suspect]
     Indication: RHINITIS ALLERGIC
     Dosage: ORAL
     Route: 048
     Dates: start: 20050307, end: 20050309
  4. CELTECT (OXATOMIDE) [Suspect]
     Indication: RHINITIS ALLERGIC
     Dosage: 60 MG, ORAL
     Route: 048
     Dates: start: 20050309, end: 20050312
  5. FLOMOX (CEFCAPENE PIVOXIL HYDROCHLORIDE) [Suspect]
     Indication: SUBCUTANEOUS ABSCESS
     Dosage: 300 MG, ORAL
     Route: 048
     Dates: start: 20050311, end: 20050313
  6. TAMIFLU [Suspect]
     Indication: INFLUENZA
     Dosage: 150 MG, ORAL
     Route: 048
     Dates: start: 20050312, end: 20050316
  7. BAYNAS (RAMATROBAN) [Concomitant]

REACTIONS (3)
  - HEPATOCELLULAR DAMAGE [None]
  - INFLUENZA [None]
  - JAUNDICE [None]
